FAERS Safety Report 13118937 (Version 2)
Quarter: 2018Q1

REPORT INFORMATION
  Report Type: Spontaneous
  Country: US (occurrence: US)
  Receive Date: 20170116
  Receipt Date: 20180117
  Transmission Date: 20180508
  Serious: No
  Sender: FDA-Public Use
  Company Number: US-SA-2016SA197956

PATIENT
  Age: 35 Year
  Sex: Male

DRUGS (2)
  1. THYMOGLOBULIN [Suspect]
     Active Substance: LAPINE T-LYMPHOCYTE IMMUNE GLOBULIN
     Indication: RENAL AND PANCREAS TRANSPLANT REJECTION
     Route: 065
     Dates: start: 20161021, end: 20161023
  2. THYMOGLOBULIN [Suspect]
     Active Substance: LAPINE T-LYMPHOCYTE IMMUNE GLOBULIN
     Indication: RENAL AND PANCREAS TRANSPLANT REJECTION
     Route: 065
     Dates: start: 20161017, end: 20161020

REACTIONS (1)
  - Therapeutic response decreased [Unknown]
